FAERS Safety Report 12212591 (Version 1)
Quarter: 2016Q1

REPORT INFORMATION
  Report Type: Spontaneous
  Country: RU (occurrence: RU)
  Receive Date: 20160328
  Receipt Date: 20160328
  Transmission Date: 20160526
  Serious: Yes (Congenital Anomaly)
  Sender: FDA-Public Use
  Company Number: RU-009507513-1603RUS011512

PATIENT
  Age: 34 Year
  Sex: Female

DRUGS (3)
  1. EPIVIR [Concomitant]
     Active Substance: LAMIVUDINE
     Route: 048
  2. ZIAGEN [Concomitant]
     Active Substance: ABACAVIR SULFATE
     Route: 048
  3. ISENTRESS [Suspect]
     Active Substance: RALTEGRAVIR POTASSIUM
     Route: 048

REACTIONS (1)
  - Renal cyst [Unknown]
